FAERS Safety Report 12065715 (Version 1)
Quarter: 2016Q1

REPORT INFORMATION
  Report Type: Spontaneous
  Country: US (occurrence: None)
  Receive Date: 20160210
  Receipt Date: 20160210
  Transmission Date: 20160526
  Serious: No
  Sender: FDA-Public Use
  Company Number: None

PATIENT
  Age: 58 Year
  Sex: Female

DRUGS (3)
  1. OXPLATIN [Concomitant]
  2. CAPECITABINE 500 MG [Suspect]
     Active Substance: CAPECITABINE
     Indication: RECTAL CANCER
     Route: 048
     Dates: start: 201511
  3. ATIVAN [Concomitant]
     Active Substance: LORAZEPAM

REACTIONS (7)
  - Neuropathy peripheral [None]
  - Nausea [None]
  - Decreased appetite [None]
  - Lacrimation increased [None]
  - Eye pain [None]
  - Swelling face [None]
  - Dry skin [None]
